FAERS Safety Report 4655359-7 (Version None)
Quarter: 2005Q2

REPORT INFORMATION
  Report Type: 
  Country: None (occurrence: None)
  Receive Date: 20050505
  Receipt Date: 20050419
  Transmission Date: 20051028
  Serious: Yes (Other)
  Sender: FDA-Public Use
  Company Number: USA050496037

PATIENT
  Age: 82 Year
  Sex: Female

DRUGS (5)
  1. CYMBALTA [Suspect]
     Indication: NEUROPATHY
     Dosage: 30 MG/ 1 AT BEDTIME
     Dates: start: 20050207, end: 20050201
  2. PREDNISONE [Concomitant]
  3. KLONOPIN [Concomitant]
  4. DYAZIDE [Concomitant]
  5. ASPIRIN [Concomitant]

REACTIONS (14)
  - ACTIVITIES OF DAILY LIVING IMPAIRED [None]
  - ARTHRALGIA [None]
  - ASTHENIA [None]
  - BACK PAIN [None]
  - DEAFNESS TRANSITORY [None]
  - EPISTAXIS [None]
  - HAEMATOTYMPANUM [None]
  - HEADACHE [None]
  - MOUTH HAEMORRHAGE [None]
  - MUCOSAL HAEMORRHAGE [None]
  - NIGHTMARE [None]
  - ORAL MUCOSAL BLISTERING [None]
  - RESTLESS LEGS SYNDROME [None]
  - SLEEP DISORDER [None]
